FAERS Safety Report 10621722 (Version 1)
Quarter: 2014Q4

REPORT INFORMATION
  Report Type: Spontaneous
  Country: US (occurrence: None)
  Receive Date: 20141201
  Receipt Date: 20141201
  Transmission Date: 20150529
  Serious: Yes (Disabling)
  Sender: FDA-Public Use
  Company Number: None

PATIENT
  Age: 44 Year
  Sex: Female
  Weight: 58.06 kg

DRUGS (1)
  1. SYNTHROID [Suspect]
     Active Substance: LEVOTHYROXINE SODIUM
     Indication: AUTOIMMUNE THYROIDITIS
     Dosage: 1
     Route: 048
     Dates: start: 20040115, end: 20141015

REACTIONS (21)
  - Blood thyroid stimulating hormone increased [None]
  - Irritable bowel syndrome [None]
  - Fatigue [None]
  - Depression [None]
  - Toxicity to various agents [None]
  - Blood thyroid stimulating hormone decreased [None]
  - Vision blurred [None]
  - Tri-iodothyronine decreased [None]
  - Arthralgia [None]
  - Hypotension [None]
  - Dry eye [None]
  - Mood swings [None]
  - Blood iron decreased [None]
  - Headache [None]
  - Heart rate decreased [None]
  - Hypothyroidism [None]
  - Nausea [None]
  - Panic attack [None]
  - Anxiety [None]
  - Pain [None]
  - Neck pain [None]
